FAERS Safety Report 7112344-3 (Version None)
Quarter: 2010Q4

REPORT INFORMATION
  Report Type: 
  Country: None (occurrence: None)
  Receive Date: 20101119
  Receipt Date: 20100831
  Transmission Date: 20110411
  Serious: No
  Sender: FDA-Public Use
  Company Number: A0874721A

PATIENT
  Age: 89 Year
  Sex: Male
  Weight: 61.4 kg

DRUGS (7)
  1. AVODART [Suspect]
     Indication: PRODUCT USED FOR UNKNOWN INDICATION
  2. TOVIAZ [Suspect]
     Indication: HYPERTONIC BLADDER
     Dosage: 8MG PER DAY
     Route: 048
     Dates: start: 20100719, end: 20100701
  3. HYDROCHLOROTHIAZIDE [Suspect]
     Indication: OEDEMA PERIPHERAL
  4. SIMVASTATIN [Suspect]
     Indication: BLOOD CHOLESTEROL INCREASED
  5. FLOMAX [Suspect]
     Indication: PRODUCT USED FOR UNKNOWN INDICATION
  6. WATER PILL [Suspect]
     Indication: PRODUCT USED FOR UNKNOWN INDICATION
  7. FINASTERIDE [Suspect]
     Indication: PROSTATOMEGALY

REACTIONS (4)
  - DRUG INTERACTION [None]
  - DYSURIA [None]
  - MICTURITION URGENCY [None]
  - URINE FLOW DECREASED [None]
